FAERS Safety Report 8794945 (Version 2)
Quarter: 2012Q4

REPORT INFORMATION
  Report Type: Report from Study
  Country: JP (occurrence: JP)
  Receive Date: 20120917
  Receipt Date: 20121008
  Transmission Date: 20130627
  Serious: No
  Sender: FDA-Public Use
  Company Number: JP-ROCHE-1124559

PATIENT
  Age: 76 Year
  Sex: Male
  Weight: 66 kg

DRUGS (16)
  1. ROACTEMRA [Suspect]
     Indication: RHEUMATOID ARTHRITIS
     Dosage: 524-542mg
     Route: 041
     Dates: start: 20090623, end: 20100928
  2. ROACTEMRA [Suspect]
     Indication: RHEUMATOID ARTHRITIS
     Route: 041
     Dates: start: 20111214
  3. RHEUMATREX [Suspect]
     Indication: RHEUMATOID ARTHRITIS
     Route: 048
  4. ISCOTIN [Concomitant]
     Indication: ANTIBIOTIC PROPHYLAXIS
     Route: 048
     Dates: start: 20090604
  5. PREDNISOLONE [Concomitant]
     Indication: RHEUMATOID ARTHRITIS
     Route: 048
     Dates: end: 20090622
  6. PREDNISOLONE [Concomitant]
     Indication: RHEUMATOID ARTHRITIS
     Route: 048
     Dates: start: 20090623, end: 20090706
  7. PREDNISOLONE [Concomitant]
     Indication: RHEUMATOID ARTHRITIS
     Route: 048
     Dates: start: 20090707, end: 20090720
  8. PREDNISOLONE [Concomitant]
     Indication: RHEUMATOID ARTHRITIS
     Route: 048
     Dates: start: 20090721, end: 20090914
  9. PREDNISOLONE [Concomitant]
     Indication: RHEUMATOID ARTHRITIS
     Route: 048
     Dates: start: 20090915
  10. ALFAROL [Concomitant]
     Indication: PROPHYLAXIS
     Route: 048
  11. GASTER [Concomitant]
     Indication: PROPHYLAXIS
     Route: 048
  12. SELBEX [Concomitant]
     Indication: PROPHYLAXIS
     Route: 048
  13. ALENDRONATE SODIUM [Concomitant]
     Indication: PROPHYLAXIS
     Dosage: Drug: Fosamac 35 mg
     Route: 048
  14. FOLIAMIN [Concomitant]
     Indication: PROPHYLAXIS
     Route: 048
  15. NORVASC [Concomitant]
     Indication: HYPERTENSION
     Route: 048
  16. ETODOLAC [Concomitant]
     Indication: RHEUMATOID ARTHRITIS
     Dosage: Drug: RAIPECK
     Route: 048

REACTIONS (1)
  - Hepatitis B [Recovered/Resolved]
